FAERS Safety Report 10072947 (Version 2)
Quarter: 2014Q2

REPORT INFORMATION
  Report Type: Spontaneous
  Country: RU (occurrence: RU)
  Receive Date: 20140411
  Receipt Date: 20140421
  Transmission Date: 20141212
  Serious: Yes (Death)
  Sender: FDA-Public Use
  Company Number: RU-ABBVIE-14P-251-1222073-00

PATIENT
  Age: 12 Year
  Sex: Male
  Weight: 44 kg

DRUGS (9)
  1. SEVORANE [Suspect]
     Indication: ANAESTHESIA
     Dosage: SEVORAN A MIXTURE OF N2O: O2 = 3:3 6% -0% 30.0 ML, 10:00 P.A.,10:02 P.A.
     Dates: start: 20140401, end: 20140401
  2. SEVORANE [Suspect]
     Indication: GENERAL ANAESTHESIA
  3. HALOTHANE [Suspect]
     Indication: ANAESTHESIA
     Dosage: FTORATAN A MIXTURE OF N2O: O2 = 3:3 TO 2.5 ML 30.0%, 10:02 P.A., 10:10 P.A.
     Dates: start: 20140401, end: 20140401
  4. ATROPINE [Concomitant]
     Indication: PREMEDICATION
     Dosage: 21:15 P.A., 21:15 P.A.
     Route: 030
     Dates: start: 20140401, end: 20140401
  5. DIMEDROL [Concomitant]
     Indication: PREMEDICATION
     Dosage: 21:15 P.A., 21:15 P.A.
     Route: 030
     Dates: start: 20140401, end: 20140401
  6. PROMEDOL [Concomitant]
     Indication: PREMEDICATION
     Dosage: 21:15 P.A., 21:15 P.A.
     Route: 030
     Dates: start: 20140401, end: 20140401
  7. KETAMIN [Concomitant]
     Indication: GENERAL ANAESTHESIA
     Dosage: 22:15 P.A., 22:15 P.A.
     Route: 042
     Dates: start: 20140401, end: 20140401
  8. FENTANIL [Concomitant]
     Indication: ANALGESIC THERAPY
     Dosage: 22:15 P.A., 22:15 P.A.
     Route: 042
     Dates: start: 20140401, end: 20140401
  9. RELANIUM [Concomitant]
     Indication: GENERAL ANAESTHESIA
     Dosage: 22:15 P.A., 22:15 P.A.
     Dates: start: 20140401, end: 20140401

REACTIONS (3)
  - Hyperthermia malignant [Fatal]
  - Ventricular fibrillation [Fatal]
  - Blood pressure increased [Fatal]
